FAERS Safety Report 10444273 (Version 1)
Quarter: 2014Q3

REPORT INFORMATION
  Report Type: Spontaneous
  Country: CN (occurrence: CN)
  Receive Date: 20140910
  Receipt Date: 20140910
  Transmission Date: 20150326
  Serious: Yes (Other)
  Sender: FDA-Public Use
  Company Number: PHHY2014CN115047

PATIENT
  Age: 49 Year
  Sex: Male

DRUGS (1)
  1. TELBIVUDINE [Suspect]
     Active Substance: TELBIVUDINE
     Dosage: 600 MG, DAILY

REACTIONS (4)
  - Mitochondrial toxicity [Unknown]
  - Muscle necrosis [Unknown]
  - Muscular weakness [Recovered/Resolved]
  - Neuromyopathy [Unknown]
